FAERS Safety Report 8296678-5 (Version None)
Quarter: 2012Q2

REPORT INFORMATION
  Report Type: 
  Country: None (occurrence: None)
  Receive Date: 20120418
  Receipt Date: 20120405
  Transmission Date: 20120825
  Serious: Yes (Other)
  Sender: FDA-Public Use
  Company Number: CA-BAXTER-2011BH040441

PATIENT
  Age: 60 Year
  Sex: Male

DRUGS (1)
  1. GAMMAGARD LIQUID [Suspect]
     Route: 042
     Dates: start: 20110930, end: 20110930

REACTIONS (5)
  - HYPERTENSION [None]
  - PYREXIA [None]
  - FEBRILE NONHAEMOLYTIC TRANSFUSION REACTION [None]
  - CHILLS [None]
  - NAUSEA [None]
